FAERS Safety Report 25760019 (Version 1)
Quarter: 2025Q3

REPORT INFORMATION
  Report Type: Spontaneous
  Country: JP (occurrence: JP)
  Receive Date: 20250904
  Receipt Date: 20250904
  Transmission Date: 20251020
  Serious: Yes (Death)
  Sender: CATALYST PHARMA
  Company Number: JP-CATALYSTPHARMACEUTICALPARTNERS-JP-CATA-25-01287

PATIENT

DRUGS (1)
  1. FYCOMPA [Suspect]
     Active Substance: PERAMPANEL
     Indication: Partial seizures
     Route: 048

REACTIONS (1)
  - Fall [Fatal]
